FAERS Safety Report 4555275-5 (Version None)
Quarter: 2005Q1

REPORT INFORMATION
  Report Type: 
  Country: None (occurrence: None)
  Receive Date: 20041227
  Receipt Date: 20040805
  Transmission Date: 20050727
  Serious: No
  Sender: FDA-Public Use
  Company Number: US086209

PATIENT
  Age: 79 Year
  Sex: Male

DRUGS (11)
  1. ARANESP [Suspect]
     Indication: RENAL FAILURE CHRONIC
     Dosage: 60 MCG, 1 IN 3 WEEKS, SC
     Route: 058
     Dates: start: 20040527, end: 20040709
  2. ALLOPURINOL [Concomitant]
  3. ACETYLSALICYLIC ACID SRT [Concomitant]
  4. ISOSORBIDE DINITRATE [Concomitant]
  5. ATORVASTATIN CALCIUM [Concomitant]
  6. AMIODARONE HYDROCHLORIDE [Concomitant]
  7. FENOFIBRATE [Concomitant]
  8. ACETAMINOPHEN AND OXYCODONE HCL [Concomitant]
  9. OMEPRAZOLE [Concomitant]
  10. SPIRONOLACTONE W/ HYDROCHLOROTHIAZIDE [Concomitant]
  11. CARVEDILOL [Concomitant]

REACTIONS (5)
  - ANOREXIA [None]
  - DEPRESSION [None]
  - NAUSEA [None]
  - VOMITING [None]
  - WEIGHT DECREASED [None]
